FAERS Safety Report 8525340-6 (Version None)
Quarter: 2012Q3

REPORT INFORMATION
  Report Type: 
  Country: None (occurrence: None)
  Receive Date: 20120720
  Receipt Date: 20120712
  Transmission Date: 20120928
  Serious: Yes (Other)
  Sender: FDA-Public Use
  Company Number: US-ASTRAZENECA-2012SE48586

PATIENT
  Age: 66 Year
  Sex: Female

DRUGS (3)
  1. CLONAZEPAM [Suspect]
     Route: 048
  2. TEMAZEPAM [Suspect]
     Route: 065
  3. NEXIUM [Suspect]
     Route: 048

REACTIONS (1)
  - DEMENTIA [None]
